FAERS Safety Report 19084586 (Version 1)
Quarter: 2021Q2

REPORT INFORMATION
  Report Type: Spontaneous
  Country: US (occurrence: US)
  Receive Date: 20210401
  Receipt Date: 20210401
  Transmission Date: 20210717
  Serious: No
  Sender: FDA-Public Use
  Company Number: US-IBSA PHARMA-2019-IBS-00672

PATIENT
  Age: 55 Year

DRUGS (2)
  1. FLECTOR [Suspect]
     Active Substance: DICLOFENAC EPOLAMINE
  2. DICLOFENAC [Suspect]
     Active Substance: DICLOFENAC
     Route: 061

REACTIONS (3)
  - Application site irritation [Unknown]
  - Skin irritation [Unknown]
  - Drug ineffective [Unknown]
